FAERS Safety Report 23721661 (Version 1)
Quarter: 2024Q2

REPORT INFORMATION
  Report Type: Report from Study
  Country: US (occurrence: None)
  Receive Date: 20240409
  Receipt Date: 20240409
  Transmission Date: 20240715
  Serious: Yes (Life-Threatening, Disabling, Other)
  Sender: FDA-Public Use
  Company Number: 2022A004584

PATIENT
  Age: 56 Year
  Sex: Female
  Weight: 90.7 kg

DRUGS (3)
  1. BRILINTA [Suspect]
     Active Substance: TICAGRELOR
     Route: 048
  2. FERROUS SULFATE [Concomitant]
     Active Substance: FERROUS SULFATE
     Indication: Blood iron
  3. AMLODIPENE BESYLATE [Concomitant]
     Indication: Hypertension

REACTIONS (2)
  - Neoplasm malignant [Recovering/Resolving]
  - Product supply issue [Unknown]
